FAERS Safety Report 6285169-9 (Version None)
Quarter: 2009Q3

REPORT INFORMATION
  Report Type: 
  Country: None (occurrence: None)
  Receive Date: 20090727
  Receipt Date: 20090716
  Transmission Date: 20100115
  Serious: Yes (Hospitalization, Other)
  Sender: FDA-Public Use
  Company Number: PHHY2009JP29720

PATIENT
  Age: 75 Year
  Sex: Female

DRUGS (9)
  1. LAMISIL [Suspect]
     Dosage: 125 MG DAILY
     Route: 048
     Dates: start: 20090528
  2. LAMISIL [Suspect]
     Dosage: 125 MG DAILY
     Dates: end: 20090713
  3. PROMAC [Concomitant]
     Dosage: 75 MG, UNK
     Route: 048
  4. GLYCYRON [Concomitant]
     Dosage: 4 DF, UNK
     Route: 048
  5. NU-LOTAN [Concomitant]
     Dosage: 50 MG, UNK
     Route: 048
  6. PARIET [Concomitant]
     Dosage: 10 MG, UNK
     Route: 048
  7. COLDRIN [Concomitant]
     Dosage: 25 MG, UNK
     Route: 048
  8. LAC B [Concomitant]
     Dosage: 3 G, UNK
     Route: 048
  9. ANTEBATE [Concomitant]
     Route: 061

REACTIONS (7)
  - ALANINE AMINOTRANSFERASE INCREASED [None]
  - ASPARTATE AMINOTRANSFERASE INCREASED [None]
  - BLOOD ALKALINE PHOSPHATASE INCREASED [None]
  - GAMMA-GLUTAMYLTRANSFERASE INCREASED [None]
  - LIVER DISORDER [None]
  - MYALGIA [None]
  - NEPHRITIS [None]
